FAERS Safety Report 5645181-7 (Version None)
Quarter: 2008Q1

REPORT INFORMATION
  Report Type: 
  Country: None (occurrence: None)
  Receive Date: 20080229
  Receipt Date: 20080218
  Transmission Date: 20080703
  Serious: Yes (Hospitalization)
  Sender: FDA-Public Use
  Company Number: US-JNJFOC-20080204598

PATIENT
  Sex: Female

DRUGS (12)
  1. FENTANYL TRANSDERMAL SYSTEM [Suspect]
     Indication: PAIN
     Dosage: 100 UG/HR AND 25 UG/HR
     Route: 062
  2. DURAGESIC-100 [Suspect]
     Indication: PAIN
     Dosage: 100 UG/HR AND 25 UG/HR PATCHES
     Route: 062
  3. ASPIRIN [Concomitant]
     Indication: CEREBROVASCULAR ACCIDENT PROPHYLAXIS
     Route: 048
  4. ZOFRAN [Concomitant]
     Indication: NAUSEA
     Route: 048
  5. PHENERGAN HCL [Concomitant]
     Indication: NAUSEA
     Dosage: EVERY 4 TO 6 HOURS AS NEEDED
     Route: 048
  6. DILAUDID [Concomitant]
     Indication: BREAKTHROUGH PAIN
     Dosage: AS NEEDED
     Route: 048
  7. ULTRAM [Concomitant]
     Indication: BREAKTHROUGH PAIN
     Dosage: AS NEEDED
     Route: 048
  8. LASIX [Concomitant]
     Indication: OEDEMA
     Dosage: AS NEEDED
     Route: 048
  9. HYDROCHLOROTHIAZIDE [Concomitant]
     Indication: OEDEMA
     Route: 048
  10. SURFAK [Concomitant]
     Indication: CONSTIPATION
     Dosage: 1-3 TIMES PER DAY AS NEEDED
     Route: 048
  11. VALIUM [Concomitant]
     Indication: MUSCLE SPASMS
     Dosage: 1-3 TABLETS THREE TIMES A DAY AS NEEDED
     Route: 048
  12. KYTRIL [Concomitant]
     Indication: NAUSEA
     Route: 048

REACTIONS (36)
  - ABDOMINAL MASS [None]
  - ABDOMINAL PAIN [None]
  - BILIARY DILATATION [None]
  - BLOOD URINE PRESENT [None]
  - BONE PAIN [None]
  - BRADYCARDIA [None]
  - CARCINOID SYNDROME [None]
  - CARCINOID TUMOUR OF THE CAECUM [None]
  - CHEST PAIN [None]
  - CHILLS [None]
  - CHRONIC OBSTRUCTIVE PULMONARY DISEASE [None]
  - COLECTOMY [None]
  - DEEP VEIN THROMBOSIS [None]
  - DIARRHOEA [None]
  - DYSPNOEA [None]
  - EXPLORATIVE LAPAROTOMY [None]
  - HEADACHE [None]
  - HYPERHIDROSIS [None]
  - HYPOTENSION [None]
  - HYSTERECTOMY [None]
  - INFECTION [None]
  - INTESTINAL RESECTION [None]
  - LEFT ATRIAL DILATATION [None]
  - MEMORY IMPAIRMENT [None]
  - MITRAL VALVE INCOMPETENCE [None]
  - NAUSEA [None]
  - NEUROPATHY PERIPHERAL [None]
  - OVARIAN CYST [None]
  - OVERDOSE [None]
  - PARAESTHESIA [None]
  - POST PROCEDURAL COMPLICATION [None]
  - PYREXIA [None]
  - RENAL PAIN [None]
  - TACHYCARDIA [None]
  - TRANSIENT ISCHAEMIC ATTACK [None]
  - VOMITING [None]
